FAERS Safety Report 15090551 (Version 1)
Quarter: 2018Q2

REPORT INFORMATION
  Report Type: Spontaneous
  Country: US (occurrence: US)
  Receive Date: 20180629
  Receipt Date: 20180629
  Transmission Date: 20180711
  Serious: No
  Sender: FDA-Public Use
  Company Number: US-ASTRAZENECA-2018SE73508

PATIENT
  Sex: Female

DRUGS (1)
  1. SYMBICORT [Suspect]
     Active Substance: BUDESONIDE\FORMOTEROL FUMARATE DIHYDRATE
     Indication: ASTHMA
     Dosage: 80/4.5 MCG TWO INHALATIONS TWICE A DAY
     Route: 055

REACTIONS (3)
  - Feeling jittery [Not Recovered/Not Resolved]
  - Wrong technique in device usage process [Unknown]
  - Heart rate increased [Not Recovered/Not Resolved]
